FAERS Safety Report 18094369 (Version 2)
Quarter: 2020Q3

REPORT INFORMATION
  Report Type: Spontaneous
  Country: US (occurrence: US)
  Receive Date: 20200730
  Receipt Date: 20200907
  Transmission Date: 20201103
  Serious: Yes (Other)
  Sender: FDA-Public Use
  Company Number: US-BAUSCH-BL-2020-021260

PATIENT
  Age: 63 Year
  Sex: Female
  Weight: 77.18 kg

DRUGS (8)
  1. LOTEMAX [Suspect]
     Active Substance: LOTEPREDNOL ETABONATE
     Indication: CORNEAL OEDEMA
     Dosage: 1 DROP IN THE RIGHT EYE ONCE DAILY
     Route: 047
  2. LATANOPROST OPHTHALMIC SOLUTION 0.005% [Suspect]
     Active Substance: LATANOPROST
     Indication: PROPHYLAXIS
  3. PROLENSA [Suspect]
     Active Substance: BROMFENAC SODIUM
     Dosage: 1 DROP IN THE RIGHT EYE ONCE DAILY?6?10 WEEKS
     Route: 047
  4. PROLENSA [Suspect]
     Active Substance: BROMFENAC SODIUM
     Dosage: 1 DROP IN THE RIGHT EYE ONCE DAILY
     Route: 047
  5. PROLENSA [Suspect]
     Active Substance: BROMFENAC SODIUM
     Indication: CATARACT OPERATION
     Dosage: 1 DROP IN THE LEFT EYE ONCE DAILY
     Route: 047
     Dates: start: 201708
  6. PROLENSA [Suspect]
     Active Substance: BROMFENAC SODIUM
     Indication: CORNEAL OEDEMA
     Dosage: 1 DROP IN THE RIGHT EYE ONCE DAILY
     Route: 047
     Dates: start: 201801
  7. LATANOPROST OPHTHALMIC SOLUTION 0.005% [Suspect]
     Active Substance: LATANOPROST
     Indication: MYOPIA
     Dosage: 1 DROP IN EACH EYE ONCE DAILY, USING FOR 6?7 YEARS
     Route: 047
  8. LOTEMAX [Suspect]
     Active Substance: LOTEPREDNOL ETABONATE
     Dosage: 1 DROP IN THE RIGHT EYE ONCE DAILY?6?10 WEEKS
     Route: 047

REACTIONS (5)
  - Disease progression [Not Recovered/Not Resolved]
  - Myopia [Not Recovered/Not Resolved]
  - Therapy interrupted [Unknown]
  - Cataract operation [Recovered/Resolved]
  - Corneal oedema [Recovering/Resolving]

NARRATIVE: CASE EVENT DATE: 2019
